FAERS Safety Report 7579143-X (Version None)
Quarter: 2011Q2

REPORT INFORMATION
  Report Type: 
  Country: None (occurrence: None)
  Receive Date: 20110628
  Receipt Date: 20110622
  Transmission Date: 20111010
  Serious: Yes (Hospitalization)
  Sender: FDA-Public Use
  Company Number: JP-PFIZER INC-2011139211

PATIENT
  Age: 35 Year
  Sex: Male

DRUGS (2)
  1. ALPRAZOLAM [Suspect]
     Indication: DEPRESSION
     Dosage: 0.4 MG, 18 TABLETS
  2. SILECE [Concomitant]
     Indication: DEPRESSION
     Dosage: 2 MG, 18 TABLETS

REACTIONS (1)
  - TOXICITY TO VARIOUS AGENTS [None]
